FAERS Safety Report 23761424 (Version 1)
Quarter: 2024Q2

REPORT INFORMATION
  Report Type: Spontaneous
  Country: BE (occurrence: BE)
  Receive Date: 20240419
  Receipt Date: 20240419
  Transmission Date: 20240716
  Serious: Yes (Death, Life-Threatening, Hospitalization, Other)
  Sender: FDA-Public Use
  Company Number: BE-STERISCIENCE B.V.-2024-ST-000450

PATIENT
  Age: 52 Year
  Sex: Male
  Weight: 87 kg

DRUGS (6)
  1. ACETYLCYSTEINE [Suspect]
     Active Substance: ACETYLCYSTEINE
     Indication: Acute hepatic failure
     Dosage: UNK
     Route: 065
  2. ACETYLCYSTEINE [Suspect]
     Active Substance: ACETYLCYSTEINE
     Indication: Overdose
  3. ACETAMINOPHEN [Concomitant]
     Active Substance: ACETAMINOPHEN
     Indication: Back pain
     Dosage: INGESTED PARACETAMOL 6GM DAILY OR EVEN MORE ON HIS OWN
     Route: 048
  4. CLONAZEPAM [Concomitant]
     Active Substance: CLONAZEPAM
     Indication: Back pain
     Dosage: UNK
     Route: 065
  5. PREGABALIN [Concomitant]
     Active Substance: PREGABALIN
     Indication: Back pain
     Dosage: UNK
     Route: 065
  6. OXYCODONE [Concomitant]
     Active Substance: OXYCODONE\OXYCODONE HYDROCHLORIDE
     Indication: Back pain
     Dosage: UNK
     Route: 065

REACTIONS (2)
  - Condition aggravated [Fatal]
  - Drug ineffective [Fatal]
